FAERS Safety Report 5989034-3 (Version None)
Quarter: 2008Q4

REPORT INFORMATION
  Report Type: 
  Country: None (occurrence: None)
  Receive Date: 20081210
  Receipt Date: 20081209
  Transmission Date: 20090506
  Serious: Yes (Other)
  Sender: FDA-Public Use
  Company Number: B0549592A

PATIENT
  Age: 51 Year
  Sex: Male

DRUGS (1)
  1. REQUIP [Suspect]
     Indication: PARKINSON'S DISEASE
     Dosage: 1MG TWICE PER DAY
     Route: 048
     Dates: start: 20080704, end: 20081118

REACTIONS (1)
  - SUDDEN ONSET OF SLEEP [None]
